FAERS Safety Report 8335015-4 (Version None)
Quarter: 2012Q2

REPORT INFORMATION
  Report Type: 
  Country: None (occurrence: None)
  Receive Date: 20120503
  Receipt Date: 20100330
  Transmission Date: 20120825
  Serious: No
  Sender: FDA-Public Use
  Company Number: US-TEVA-2010001844

PATIENT
  Sex: Male

DRUGS (5)
  1. MULTI-VITAMIN [Concomitant]
  2. NUVIGIL [Suspect]
     Indication: SLEEP APNOEA SYNDROME
     Dosage: 150 MILLIGRAM;
     Route: 048
     Dates: start: 20100329
  3. SIMVASTATIN [Concomitant]
     Dates: start: 20100101
  4. LISINOPRIL [Concomitant]
     Dates: start: 20100101
  5. ACTOPLUS MET [Concomitant]
     Dates: start: 20100101

REACTIONS (1)
  - DRUG INEFFECTIVE [None]
